FAERS Safety Report 5519754-6 (Version None)
Quarter: 2007Q4

REPORT INFORMATION
  Report Type: 
  Country: None (occurrence: None)
  Receive Date: 20071116
  Receipt Date: 20070806
  Transmission Date: 20080405
  Serious: No
  Sender: FDA-Public Use
  Company Number: A0668358A

PATIENT
  Age: 75 Year
  Sex: Male

DRUGS (8)
  1. COREG CR [Suspect]
     Indication: HYPERTENSION
     Dosage: 20MG PER DAY
     Route: 048
  2. GEMFIBROZIL [Concomitant]
  3. PROTONIX [Concomitant]
  4. FLOMAX [Concomitant]
  5. SUCRALFATE [Concomitant]
  6. CELEBREX [Concomitant]
  7. ALLOPURINOL [Concomitant]
  8. ANTI-CHOLESTEROL MEDICATION [Concomitant]

REACTIONS (1)
  - FATIGUE [None]
